FAERS Safety Report 5213706-1 (Version None)
Quarter: 2007Q1

REPORT INFORMATION
  Report Type: 
  Country: None (occurrence: None)
  Receive Date: 20070119
  Receipt Date: 20070110
  Transmission Date: 20070707
  Serious: Yes (Other)
  Sender: FDA-Public Use
  Company Number: US-PFIZER INC-2007003191

PATIENT
  Sex: Female
  Weight: 58.1 kg

DRUGS (2)
  1. CHANTIX [Suspect]
     Indication: EX-SMOKER
  2. DIOVAN HCT [Concomitant]

REACTIONS (1)
  - BLOOD PRESSURE INCREASED [None]
